FAERS Safety Report 22602135 (Version 1)
Quarter: 2023Q2

REPORT INFORMATION
  Report Type: Spontaneous
  Country: None (occurrence: FR)
  Receive Date: 20230614
  Receipt Date: 20230614
  Transmission Date: 20230722
  Serious: Yes (Other)
  Sender: FDA-Public Use
  Company Number: FR-B.Braun Medical Inc.-2142708

PATIENT
  Age: 43 Year
  Sex: Male
  Weight: 208 kg

DRUGS (6)
  1. METRONIDAZOLE [Suspect]
     Active Substance: METRONIDAZOLE
  2. CASPOFUNGIN ACETATE [Suspect]
     Active Substance: CASPOFUNGIN ACETATE
  3. CIPROFLOXACIN [Suspect]
     Active Substance: CIPROFLOXACIN
  4. ESOMEPRAZOLE [Suspect]
     Active Substance: ESOMEPRAZOLE
  5. DAPTOMYCIN [Suspect]
     Active Substance: DAPTOMYCIN
  6. TEICOPLANIN [Suspect]
     Active Substance: TEICOPLANIN

REACTIONS (3)
  - Pancytopenia [Recovering/Resolving]
  - Eosinophilia [Not Recovered/Not Resolved]
  - Erythema [Recovering/Resolving]
